FAERS Safety Report 6409281-6 (Version None)
Quarter: 2009Q4

REPORT INFORMATION
  Report Type: 
  Country: None (occurrence: None)
  Receive Date: 20091021
  Receipt Date: 20091007
  Transmission Date: 20100525
  Serious: No
  Sender: FDA-Public Use
  Company Number: US-B.I. PHARMACEUTICALS,INC./RIDGEFIELD-2009-BP-11711BP

PATIENT
  Sex: Female

DRUGS (9)
  1. SPIRIVA [Suspect]
     Indication: CHRONIC OBSTRUCTIVE PULMONARY DISEASE
     Dosage: 18 MCG
     Route: 055
     Dates: start: 20070101
  2. NEXIUM [Concomitant]
     Indication: GASTROOESOPHAGEAL REFLUX DISEASE
  3. SYNTHROID [Concomitant]
     Indication: THYROID DISORDER
  4. CLARITIN [Concomitant]
     Indication: HYPERSENSITIVITY
  5. SINGULAIR [Concomitant]
     Indication: HYPERSENSITIVITY
  6. LORTAB [Concomitant]
     Indication: PAIN
  7. VALIUM [Concomitant]
     Indication: PAIN
  8. FLEXERIL [Concomitant]
     Indication: PAIN
  9. TRAZODONE [Concomitant]

REACTIONS (3)
  - COUGH [None]
  - FAECAL INCONTINENCE [None]
  - URINARY INCONTINENCE [None]
